FAERS Safety Report 24858409 (Version 1)
Quarter: 2025Q1

REPORT INFORMATION
  Report Type: Spontaneous
  Country: JP (occurrence: JP)
  Receive Date: 20250117
  Receipt Date: 20250117
  Transmission Date: 20250409
  Serious: Yes (Hospitalization, Other)
  Sender: SUNOVION
  Company Number: JP-SMPA-2025SMP000053

PATIENT

DRUGS (2)
  1. LATUDA [Suspect]
     Active Substance: LURASIDONE HYDROCHLORIDE
     Indication: Depression
     Dosage: 60 MG, QD
     Route: 048
     Dates: start: 202412
  2. INVEGA [Suspect]
     Active Substance: PALIPERIDONE
     Indication: Product used for unknown indication
     Dosage: 6 MG, QD
     Route: 048

REACTIONS (3)
  - Suicide attempt [Unknown]
  - Self-destructive behaviour [Unknown]
  - Off label use [Unknown]

NARRATIVE: CASE EVENT DATE: 20241201
